FAERS Safety Report 24344927 (Version 2)
Quarter: 2024Q3

REPORT INFORMATION
  Report Type: Spontaneous
  Country: BR (occurrence: BR)
  Receive Date: 20240920
  Receipt Date: 20240930
  Transmission Date: 20241017
  Serious: No
  Sender: BAYER
  Company Number: BR-BAYER-2024A131877

PATIENT
  Age: 71 Year
  Sex: Female

DRUGS (3)
  1. STIVARGA [Suspect]
     Active Substance: REGORAFENIB MONOHYDRATE
     Indication: Rectal cancer
     Dosage: 80 MG, QD
     Dates: start: 202408
  2. STIVARGA [Suspect]
     Active Substance: REGORAFENIB MONOHYDRATE
     Indication: Metastases to lung
     Dosage: 120 MG, QD
  3. STIVARGA [Suspect]
     Active Substance: REGORAFENIB MONOHYDRATE
     Indication: Metastases to liver

REACTIONS (1)
  - Off label use [None]

NARRATIVE: CASE EVENT DATE: 20240801
